FAERS Safety Report 5384677-2 (Version None)
Quarter: 2007Q3

REPORT INFORMATION
  Report Type: 
  Country: None (occurrence: None)
  Receive Date: 20070710
  Receipt Date: 20070511
  Transmission Date: 20080115
  Serious: Yes (Life-Threatening, Hospitalization, Other)
  Sender: FDA-Public Use
  Company Number: 2007-01120

PATIENT
  Age: 78 Year
  Sex: Female
  Weight: 78.4 kg

DRUGS (17)
  1. VELCADE [Suspect]
     Indication: MULTIPLE MYELOMA
     Dosage: 1.30 MG/M2, IV BOLUS
     Route: 040
     Dates: start: 20070327, end: 20070330
  2. VELCADE [Suspect]
     Indication: MULTIPLE MYELOMA
     Dosage: 1.30 MG/M2, IV BOLUS
     Route: 040
     Dates: start: 20060601
  3. DOXIL [Suspect]
     Indication: MULTIPLE MYELOMA
     Dosage: 30.00 MG/M2, INTRAVENOUS
     Route: 042
     Dates: start: 20070330, end: 20070330
  4. PALONOSETRON (ALOXIPRIN) [Concomitant]
  5. DEXAMETHASONE 0.5MG TAB [Concomitant]
  6. PROCHLORPERAZINE MALEATE [Concomitant]
  7. COMPAZINE [Concomitant]
  8. COUMADIN [Concomitant]
  9. ASPIRIN [Concomitant]
  10. MAGNESIUM OXIDE (MAGNESIUM OXIDE) [Concomitant]
  11. LASIX [Concomitant]
  12. TOPROL-XL [Concomitant]
  13. MIACALCIN [Concomitant]
  14. CALCITRIOL [Concomitant]
  15. PROTONIX [Concomitant]
  16. CALCIUM CARBONATE (CALCIUM CARBONATE) [Concomitant]
  17. ZOMETA [Concomitant]

REACTIONS (6)
  - ANAEMIA [None]
  - EPISTAXIS [None]
  - HYPOTENSION [None]
  - RENAL FAILURE ACUTE [None]
  - RESPIRATORY FAILURE [None]
  - SKIN LESION [None]
